FAERS Safety Report 15119776 (Version 1)
Quarter: 2018Q3

REPORT INFORMATION
  Report Type: Spontaneous
  Country: US (occurrence: US)
  Receive Date: 20180709
  Receipt Date: 20180709
  Transmission Date: 20181010
  Serious: No
  Sender: FDA-Public Use
  Company Number: US-GLENMARK PHARMACEUTICALS-2017GMK030409

PATIENT

DRUGS (1)
  1. OMEPRAZOLE. [Suspect]
     Active Substance: OMEPRAZOLE
     Indication: COELIAC DISEASE
     Dosage: UNK
     Route: 065
     Dates: start: 201709, end: 201711

REACTIONS (3)
  - Investigation abnormal [Unknown]
  - Product use in unapproved indication [Unknown]
  - Product substitution issue [Unknown]

NARRATIVE: CASE EVENT DATE: 201709
